FAERS Safety Report 4788902-8 (Version None)
Quarter: 2005Q4

REPORT INFORMATION
  Report Type: 
  Country: None (occurrence: None)
  Receive Date: 20051005
  Receipt Date: 20050712
  Transmission Date: 20060501
  Serious: Yes (Disabling)
  Sender: FDA-Public Use
  Company Number: GBWYE832214JUL05

PATIENT
  Sex: Female

DRUGS (2)
  1. ENBREL [Suspect]
     Indication: RHEUMATOID ARTHRITIS
     Route: 058
     Dates: start: 20031201, end: 20050601
  2. PREDNISOLONE [Concomitant]
     Dosage: 5MG, FREQUENCY UNKNOWN
     Route: 048
     Dates: start: 20040401

REACTIONS (2)
  - ABDOMINAL DISTENSION [None]
  - METASTASES TO LIVER [None]
